FAERS Safety Report 9451098 (Version 2)
Quarter: 2013Q3

REPORT INFORMATION
  Report Type: Report from Study
  Country: US (occurrence: US)
  Receive Date: 20130809
  Receipt Date: 20130909
  Transmission Date: 20140515
  Serious: Yes (Hospitalization, Other)
  Sender: FDA-Public Use
  Company Number: US-US-EMD SERONO, INC.-7228466

PATIENT
  Age: 44 Year
  Sex: Male

DRUGS (2)
  1. REBIF [Suspect]
     Indication: MULTIPLE SCLEROSIS
     Route: 058
     Dates: start: 20120605, end: 20130405
  2. REBIF [Suspect]
     Route: 058
     Dates: start: 20130719

REACTIONS (2)
  - Cerebrovascular accident [Unknown]
  - Convulsion [Recovering/Resolving]
